FAERS Safety Report 15801300 (Version 1)
Quarter: 2019Q1

REPORT INFORMATION
  Report Type: Spontaneous
  Country: US (occurrence: US)
  Receive Date: 20190109
  Receipt Date: 20190109
  Transmission Date: 20190417
  Serious: Yes (Other)
  Sender: FDA-Public Use
  Company Number: US-ROCHE-2240129

PATIENT

DRUGS (1)
  1. XOLAIR [Suspect]
     Active Substance: OMALIZUMAB
     Indication: PRODUCT USED FOR UNKNOWN INDICATION
     Dosage: 300 MG(150 EACH ARM) INJECTION 14TH INJECTION 12/2
     Route: 065

REACTIONS (6)
  - Pain in extremity [Unknown]
  - Injection site reaction [Unknown]
  - Influenza [Unknown]
  - Headache [Unknown]
  - Diarrhoea [Unknown]
  - Muscle spasms [Unknown]
